FAERS Safety Report 24341347 (Version 2)
Quarter: 2024Q3

REPORT INFORMATION
  Report Type: Spontaneous
  Country: AT (occurrence: AT)
  Receive Date: 20240920
  Receipt Date: 20240920
  Transmission Date: 20241017
  Serious: Yes (Other)
  Sender: STRIDES
  Company Number: AT-STRIDES ARCOLAB LIMITED-2024SP012095

PATIENT
  Age: 72 Year
  Sex: Male

DRUGS (6)
  1. PREDNISOLONE [Suspect]
     Active Substance: PREDNISOLONE
     Indication: Immune-mediated hepatitis
     Dosage: 250 MILLIGRAM, QD
     Route: 042
     Dates: start: 2023, end: 2023
  2. PREDNISOLONE [Suspect]
     Active Substance: PREDNISOLONE
     Dosage: 100 MILLIGRAM, QD
     Route: 048
     Dates: start: 2023, end: 202309
  3. MYCOPHENOLATE MOFETIL [Suspect]
     Active Substance: MYCOPHENOLATE MOFETIL
     Indication: Immune-mediated hepatitis
     Dosage: 2000 MILLIGRAM, QD
     Route: 065
     Dates: start: 202306, end: 202309
  4. IPILIMUMAB [Suspect]
     Active Substance: IPILIMUMAB
     Indication: Superficial spreading melanoma stage IV
     Dosage: UNK, CYCLICAL
     Route: 065
     Dates: start: 202302, end: 202303
  5. NIVOLUMAB [Suspect]
     Active Substance: NIVOLUMAB
     Indication: Superficial spreading melanoma stage IV
     Dosage: UNK, CYCLICAL
     Route: 065
     Dates: start: 202302, end: 202303
  6. Immunoglobulin [Concomitant]
     Indication: Multifocal motor neuropathy
     Dosage: 8 GRAM, EVERY 4 DAYS
     Route: 058
     Dates: start: 2017

REACTIONS (3)
  - Multifocal motor neuropathy [Recovered/Resolved]
  - Condition aggravated [Recovered/Resolved]
  - Off label use [Unknown]

NARRATIVE: CASE EVENT DATE: 20230301
